FAERS Safety Report 10021063 (Version 2)
Quarter: 2014Q2

REPORT INFORMATION
  Report Type: Report from Study
  Country: JP (occurrence: JP)
  Receive Date: 20140319
  Receipt Date: 20140430
  Transmission Date: 20141212
  Serious: Yes (Other)
  Sender: FDA-Public Use
  Company Number: JP-OTSUKA-JP-2014-12569

PATIENT
  Age: 87 Year
  Sex: Male
  Weight: 56.2 kg

DRUGS (14)
  1. SAMSCA [Suspect]
     Indication: OEDEMA DUE TO CARDIAC DISEASE
     Dosage: 7.5 MG MILLIGRAM(S), QAM
     Route: 048
     Dates: start: 20130328
  2. LASIX [Suspect]
     Indication: CARDIAC FAILURE
     Dosage: 10 MG MILLIGRAM(S), DAILY DOSE
     Route: 042
     Dates: start: 20130323, end: 20130327
  3. LASIX [Suspect]
     Indication: CARDIAC FAILURE
     Dosage: 20 MG MILLIGRAM(S), DAILY DOSE
     Route: 048
  4. ZYLORIC [Concomitant]
     Indication: HYPERURICAEMIA
     Dosage: 200 MG MILLIGRAM(S), DAILY DOSE
     Route: 048
  5. PIMOBENDAN [Concomitant]
     Indication: CARDIAC FAILURE
     Dosage: 1.25 MG MILLIGRAM(S), DAILY DOSE
     Route: 048
  6. BAYASPIRIN [Concomitant]
     Indication: ANGINA PECTORIS
     Dosage: 100 MG MILLIGRAM(S), DAILY DOSE
     Route: 048
  7. MAGNESIUM OXIDE [Concomitant]
     Indication: CONSTIPATION
     Dosage: 1.5 G GRAM(S), DAILY DOSE
     Route: 048
  8. NEXIUM [Concomitant]
     Indication: GASTRIC ULCER
     Dosage: 20 MG MILLIGRAM(S), DAILY DOSE
     Route: 048
  9. SIGMART [Concomitant]
     Indication: ANGINA PECTORIS
     Dosage: 15 MG MILLIGRAM(S), DAILY DOSE
     Route: 048
  10. LUPRAC [Concomitant]
     Indication: CARDIAC FAILURE
     Dosage: 4 MG MILLIGRAM(S), DAILY DOSE
     Route: 048
  11. ARGAMATE [Concomitant]
     Indication: RENAL FAILURE
     Dosage: 3 DF DOSAGE FORM, DAILY DOSE
     Route: 048
  12. ARTIST [Concomitant]
     Indication: CARDIAC FAILURE
     Dosage: 3.75 MG MILLIGRAM(S), DAILY DOSE
     Route: 048
  13. PLAVIX [Concomitant]
     Indication: ANGINA PECTORIS
     Dosage: 75 MG MILLIGRAM(S), DAILY DOSE
     Route: 048
  14. HANP [Concomitant]
     Indication: CARDIAC FAILURE
     Dosage: 0.025 UG/KG/MIN, DAILY DOSE
     Route: 041
     Dates: start: 20130321, end: 20130331

REACTIONS (1)
  - Blood urea increased [Unknown]
